FAERS Safety Report 22297793 (Version 1)
Quarter: 2023Q2

REPORT INFORMATION
  Report Type: Spontaneous
  Country: GB (occurrence: GB)
  Receive Date: 20230509
  Receipt Date: 20230509
  Transmission Date: 20230721
  Serious: Yes (Other)
  Sender: FDA-Public Use
  Company Number: GB-Bristol Laboratories Ltd-BLL202304-000054

PATIENT
  Sex: Female

DRUGS (2)
  1. CODEINE PHOSPHATE [Suspect]
     Active Substance: CODEINE PHOSPHATE
     Indication: Back pain
     Dosage: UNK (BOOTS PARACETAMOL AND CODEINE TABLETS (32S)/ WAS ON THE MEDICATION FOR LAST 2 YEARS)
     Route: 065
  2. ACETAMINOPHEN [Suspect]
     Active Substance: ACETAMINOPHEN
     Indication: Back pain
     Dosage: UNK (BOOTS PARACETAMOL AND CODEINE TABLETS (32S)/ WAS ON THE MEDICATION FOR LAST 2 YEARS)
     Route: 065

REACTIONS (2)
  - Drug dependence [Unknown]
  - Intentional product misuse [Unknown]
